FAERS Safety Report 8084883 (Version 2)
Quarter: 2012Q4

REPORT INFORMATION
  Report Type: 
  Country: US (occurrence: US)
  Receive Date: 20110810
  Receipt Date: 20121019
  Transmission Date: 20130627
  Serious: Yes (Hospitalization)
  Sender: FDA-Public Use
  Company Number: US-BAYER-2011-070833

PATIENT
  Age: 24 Year
  Sex: Female

DRUGS (12)
  1. OCELLA [Suspect]
     Indication: PRODUCT USED FOR UNKNOWN INDICATION
  2. YAZ [Suspect]
  3. PERCOCET [Concomitant]
     Indication: PAIN
     Dosage: 1 tablet PRN
     Route: 048
  4. NAUSETROL [Concomitant]
     Indication: NAUSEA
     Route: 048
  5. NAUSETROL [Concomitant]
     Indication: VOMITING
  6. NAPROXEN [Concomitant]
     Indication: PAIN
     Dosage: 250 mg, 1 tablet, UNK
     Route: 048
  7. AZITHROMYCIN [Concomitant]
     Dosage: 500 mg, QD
     Route: 048
  8. NICOTINE [Concomitant]
     Indication: PAIN
  9. LIDODERM [Concomitant]
     Indication: PAIN
  10. CEFTRIAXONE [Concomitant]
  11. AMBIEN [Concomitant]
  12. PROTONIX [Concomitant]

REACTIONS (2)
  - Pulmonary embolism [Unknown]
  - Injury [None]
